FAERS Safety Report 9525235 (Version 5)
Quarter: 2014Q2

REPORT INFORMATION
  Report Type: Spontaneous
  Country: CN (occurrence: CN)
  Receive Date: 20130916
  Receipt Date: 20140516
  Transmission Date: 20141212
  Serious: Yes (Other)
  Sender: FDA-Public Use
  Company Number: PHHY2013CN101817

PATIENT
  Age: 30 Year
  Sex: Female

DRUGS (1)
  1. SEBIVO [Suspect]
     Indication: CHRONIC HEPATITIS B
     Dosage: 600 MG, PER DAY
     Route: 048
     Dates: start: 20111001, end: 20131021

REACTIONS (2)
  - Gastrointestinal haemorrhage [Unknown]
  - Hypochromic anaemia [Unknown]
